FAERS Safety Report 9665670 (Version 1)
Quarter: 2013Q4

REPORT INFORMATION
  Report Type: Spontaneous
  Country: US (occurrence: US)
  Receive Date: 20131104
  Receipt Date: 20131104
  Transmission Date: 20140711
  Serious: No
  Sender: FDA-Public Use
  Company Number: US-PFIZER INC-2013310279

PATIENT
  Sex: Female

DRUGS (1)
  1. DEPO-PROVERA [Suspect]
     Indication: ENDOMETRIOSIS
     Dosage: UNK

REACTIONS (6)
  - Weight increased [Unknown]
  - Insomnia [Unknown]
  - Dry skin [Unknown]
  - Acne [Unknown]
  - Hot flush [Unknown]
  - Hyperhidrosis [Unknown]
